FAERS Safety Report 13923008 (Version 1)
Quarter: 2017Q3

REPORT INFORMATION
  Report Type: Spontaneous
  Country: PL (occurrence: PL)
  Receive Date: 20170830
  Receipt Date: 20170830
  Transmission Date: 20171127
  Serious: Yes (Other)
  Sender: FDA-Public Use
  Company Number: PL-BAXTER-2017BAX031286

PATIENT
  Age: 90 Year
  Sex: Male

DRUGS (1)
  1. NATRIUM CHLORATUM 0,9% BAXTER [Suspect]
     Active Substance: SODIUM CHLORIDE
     Indication: DEVICE PRIMING
     Route: 010
     Dates: end: 20170624

REACTIONS (5)
  - Venous pressure increased [Unknown]
  - Haemorrhage [Unknown]
  - Loss of consciousness [Unknown]
  - Dyspnoea [Unknown]
  - Pallor [Unknown]

NARRATIVE: CASE EVENT DATE: 20170624
